FAERS Safety Report 5593345-3 (Version None)
Quarter: 2008Q1

REPORT INFORMATION
  Report Type: 
  Country: None (occurrence: None)
  Receive Date: 20080116
  Receipt Date: 20080108
  Transmission Date: 20080703
  Serious: Yes (Other)
  Sender: FDA-Public Use
  Company Number: JP-ASTRAZENECA-2007AP08144

PATIENT
  Age: 50 Year
  Sex: Female
  Weight: 65 kg

DRUGS (4)
  1. CRESTOR [Suspect]
     Indication: HYPERLIPIDAEMIA
     Route: 048
     Dates: start: 20071213, end: 20071215
  2. CARDENALIN [Suspect]
     Indication: HYPERTENSION
     Route: 048
     Dates: start: 20071213, end: 20071215
  3. MEILAX [Suspect]
     Indication: INSOMNIA
     Route: 048
     Dates: start: 20071213, end: 20071215
  4. NORVASC [Concomitant]
     Indication: HYPERTENSION
     Route: 048
     Dates: start: 20071107, end: 20071214

REACTIONS (3)
  - ALTERED STATE OF CONSCIOUSNESS [None]
  - FLUID INTAKE REDUCED [None]
  - MYALGIA [None]
